FAERS Safety Report 16592421 (Version 1)
Quarter: 2019Q3

REPORT INFORMATION
  Report Type: Spontaneous
  Country: US (occurrence: US)
  Receive Date: 20190718
  Receipt Date: 20190718
  Transmission Date: 20191004
  Serious: No
  Sender: FDA-Public Use
  Company Number: US-NOVOPROD-660896

PATIENT
  Age: 65 Year
  Sex: Female

DRUGS (2)
  1. TRESIBA [Suspect]
     Active Substance: INSULIN DEGLUDEC
     Indication: TYPE 1 DIABETES MELLITUS
     Dosage: 12 IU, QD
     Route: 058
     Dates: start: 20190329
  2. FIASP 3ML PDS290 [Suspect]
     Active Substance: INSULIN ASPART
     Indication: TYPE 1 DIABETES MELLITUS
     Dosage: 2 TO 8 UNITS THREE TIMES A DAY AT EACH MEAL
     Route: 058
     Dates: start: 20190329

REACTIONS (4)
  - Blood glucose decreased [Not Recovered/Not Resolved]
  - Blood glucose increased [Not Recovered/Not Resolved]
  - Injection site extravasation [Not Recovered/Not Resolved]
  - Incorrect route of product administration [Unknown]

NARRATIVE: CASE EVENT DATE: 20190329
